FAERS Safety Report 7280944 (Version 2)
Quarter: 2014Q1

REPORT INFORMATION
  Report Type: Spontaneous
  Country: US (occurrence: US)
  Receive Date: 20100217
  Receipt Date: 20140122
  Transmission Date: 20141002
  Serious: No
  Sender: FDA-Public Use
  Company Number: US-JNJFOC-20100203979

PATIENT
  Age: 33 Year
  Sex: Male
  Weight: 15.88 kg

DRUGS (6)
  1. SANDOZ FENTANYL TRANSDERMAL SYSTEM [Suspect]
     Indication: PAIN
     Route: 062
     Dates: start: 200911
  2. SANDOZ FENTANYL TRANSDERMAL SYSTEM [Suspect]
     Indication: PAIN
     Route: 062
     Dates: start: 200910, end: 200911
  3. LYRICA [Concomitant]
     Indication: RESTLESS LEGS SYNDROME
     Route: 048
     Dates: start: 200910
  4. LYRICA [Concomitant]
     Indication: HYPOAESTHESIA
     Route: 048
     Dates: start: 200910
  5. VICODIN [Concomitant]
     Indication: PAIN
     Dosage: DOSE: 10/325 MG
     Route: 048
     Dates: start: 200911
  6. XANAX [Concomitant]
     Indication: ANXIETY
     Route: 048
     Dates: start: 201001

REACTIONS (5)
  - Drug administered at inappropriate site [Unknown]
  - Therapeutic response decreased [Recovered/Resolved]
  - Wrong technique in drug usage process [Not Recovered/Not Resolved]
  - Drug ineffective [Recovered/Resolved]
  - Product quality issue [Unknown]
